FAERS Safety Report 15310282 (Version 1)
Quarter: 2018Q3

REPORT INFORMATION
  Report Type: Spontaneous
  Country: US (occurrence: US)
  Receive Date: 20180813
  Receipt Date: 20180813
  Transmission Date: 20181010
  Serious: Yes (Disabling)
  Sender: FDA-Public Use
  Company Number: None

PATIENT
  Age: 70 Year
  Sex: Female
  Weight: 63.9 kg

DRUGS (14)
  1. OMEPRAZOLE. [Concomitant]
     Active Substance: OMEPRAZOLE
  2. SIMVASTATIN. [Concomitant]
     Active Substance: SIMVASTATIN
  3. FAMOTIDINE. [Concomitant]
     Active Substance: FAMOTIDINE
  4. PENTASA [Concomitant]
     Active Substance: MESALAMINE
  5. TYLENOL [Concomitant]
     Active Substance: ACETAMINOPHEN
  6. HUMIRA [Concomitant]
     Active Substance: ADALIMUMAB
  7. PREDNISONE. [Concomitant]
     Active Substance: PREDNISONE
  8. CALCIUM [Concomitant]
     Active Substance: CALCIUM
  9. MULTI?VITAMIN [Concomitant]
     Active Substance: .ALPHA.-TOCOPHEROL ACETATE, DL-\ASCORBIC ACID\CYANOCOBALAMIN\FLUORIDE ION\FOLIC ACID\NIACIN\PYRIDOXINE\RIBOFLAVIN\THIAMINE\VITAMIN A\VITAMIN D
  10. BUPROPION HYDROCHLORIDE SR [Concomitant]
     Active Substance: BUPROPION HYDROCHLORIDE
  11. VOLTARIN GEL [Concomitant]
  12. TYLENOL PM [Concomitant]
     Active Substance: ACETAMINOPHEN\DIPHENHYDRAMINE
  13. HUMIRA [Suspect]
     Active Substance: ADALIMUMAB
     Indication: CROHN^S DISEASE
     Dosage: ?          QUANTITY:1 INJECTION(S);OTHER FREQUENCY:EVERY 2 WEEKS;OTHER ROUTE:INJECTED UNDER THE SKIN?
     Dates: start: 20180427, end: 20180720
  14. AMILORIDE HCL/HCTZ [Concomitant]

REACTIONS (4)
  - Paraesthesia [None]
  - Jaw disorder [None]
  - Muscle spasms [None]
  - Pain in extremity [None]

NARRATIVE: CASE EVENT DATE: 20180518
